FAERS Safety Report 14779288 (Version 2)
Quarter: 2018Q2

REPORT INFORMATION
  Report Type: Spontaneous
  Country: US (occurrence: US)
  Receive Date: 20180419
  Receipt Date: 20180502
  Transmission Date: 20180711
  Serious: Yes (Other)
  Sender: FDA-Public Use
  Company Number: US-TOLMAR, INC.-2018US003104

PATIENT

DRUGS (6)
  1. BUSPIRONE [Concomitant]
     Active Substance: BUSPIRONE HYDROCHLORIDE
     Dosage: UNK
     Dates: start: 201802
  2. ZOLOFT [Concomitant]
     Active Substance: SERTRALINE HYDROCHLORIDE
     Dosage: UNK
     Dates: start: 201801
  3. PROGESTERONE. [Concomitant]
     Active Substance: PROGESTERONE
     Dosage: UNK
     Dates: start: 2016
  4. ELIGARD [Suspect]
     Active Substance: LEUPROLIDE ACETATE
     Indication: TRANS-SEXUALISM
     Dosage: 22.5 MG, Q3MONTHS
     Route: 058
     Dates: start: 2014
  5. ELIGARD [Suspect]
     Active Substance: LEUPROLIDE ACETATE
     Dosage: UNK UNK,
     Route: 065
     Dates: start: 201712
  6. ESTROGEN [Concomitant]
     Active Substance: ESTROGENS
     Dosage: UNK
     Dates: start: 201501

REACTIONS (7)
  - Anxiety [Recovering/Resolving]
  - Hot flush [Recovered/Resolved]
  - Heart rate increased [Unknown]
  - Obsessive-compulsive disorder [Recovering/Resolving]
  - Paraesthesia [Recovering/Resolving]
  - Musculoskeletal stiffness [Recovering/Resolving]
  - Off label use [Unknown]

NARRATIVE: CASE EVENT DATE: 2014
